FAERS Safety Report 5401573-2 (Version None)
Quarter: 2007Q3

REPORT INFORMATION
  Report Type: 
  Country: None (occurrence: None)
  Receive Date: 20070731
  Receipt Date: 20070719
  Transmission Date: 20080115
  Serious: Yes (Hospitalization)
  Sender: FDA-Public Use
  Company Number: DE-GENENTECH-243439

PATIENT
  Sex: Male

DRUGS (2)
  1. LUCENTIS [Suspect]
     Indication: MACULAR DEGENERATION
     Dosage: UNK, SINGLE
     Route: 031
     Dates: start: 20070322, end: 20070322
  2. LUCENTIS [Suspect]
     Dosage: UNK, SINGLE
     Route: 031
     Dates: start: 20070418, end: 20070418

REACTIONS (1)
  - CEREBROVASCULAR ACCIDENT [None]
